FAERS Safety Report 25894414 (Version 1)
Quarter: 2025Q4

REPORT INFORMATION
  Report Type: Spontaneous
  Country: US (occurrence: US)
  Receive Date: 20251008
  Receipt Date: 20251008
  Transmission Date: 20260118
  Serious: No
  Sender: BRISTOL-MYERS SQUIBB COMPANY
  Company Number: US-MLMSERVICE-20250923-PI652553-00255-1

PATIENT
  Age: 32 Year
  Sex: Male

DRUGS (4)
  1. PACLITAXEL [Suspect]
     Active Substance: PACLITAXEL
     Indication: Non-small cell lung cancer metastatic
  2. PACLITAXEL [Suspect]
     Active Substance: PACLITAXEL
     Indication: Malignant pleural effusion
  3. CETUXIMAB [Suspect]
     Active Substance: CETUXIMAB
     Indication: Non-small cell lung cancer metastatic
  4. CETUXIMAB [Suspect]
     Active Substance: CETUXIMAB
     Indication: Malignant pleural effusion

REACTIONS (1)
  - Fatigue [Unknown]
